FAERS Safety Report 24697062 (Version 1)
Quarter: 2024Q4

REPORT INFORMATION
  Report Type: Spontaneous
  Country: FR (occurrence: FR)
  Receive Date: 20241204
  Receipt Date: 20241204
  Transmission Date: 20250115
  Serious: Yes (Other)
  Sender: PFIZER
  Company Number: None

PATIENT
  Age: 66 Year
  Sex: Male

DRUGS (2)
  1. CLINDAMYCIN [Suspect]
     Active Substance: CLINDAMYCIN
     Indication: Intervertebral discitis
     Dosage: 2.7 G, DAILY
     Route: 048
     Dates: start: 20241003, end: 20241005
  2. CLOXACILLIN [Suspect]
     Active Substance: CLOXACILLIN
     Indication: Intervertebral discitis
     Dosage: 12 G, DAILY
     Route: 042
     Dates: start: 20240928, end: 20241003

REACTIONS (2)
  - Hepatic cytolysis [Recovered/Resolved]
  - Cholestasis [Recovered/Resolved]

NARRATIVE: CASE EVENT DATE: 20241005
